FAERS Safety Report 15606640 (Version 1)
Quarter: 2018Q4

REPORT INFORMATION
  Report Type: Spontaneous
  Country: US (occurrence: US)
  Receive Date: 20181106
  Receipt Date: 20181106
  Transmission Date: 20190205
  Serious: No
  Sender: FDA-Public Use
  Company Number: None

PATIENT
  Age: 77 Year
  Sex: Male

DRUGS (1)
  1. TENOFOVIR++ DISOPROXIL FUMARAT 300MG TEVA PHARMACEUTICALS USA [Suspect]
     Active Substance: TENOFOVIR DISOPROXIL FUMARATE
     Indication: ACUTE HEPATITIS B
     Route: 048
     Dates: start: 20180601, end: 20181025

REACTIONS (3)
  - Disturbance in attention [None]
  - Somnolence [None]
  - Feeling abnormal [None]

NARRATIVE: CASE EVENT DATE: 20180901
